FAERS Safety Report 14979647 (Version 5)
Quarter: 2018Q4

REPORT INFORMATION
  Report Type: Report from Study
  Country: AR (occurrence: AR)
  Receive Date: 20180606
  Receipt Date: 20181025
  Transmission Date: 20190204
  Serious: Yes (Other)
  Sender: FDA-Public Use
  Company Number: PHHY2018AR013447

PATIENT
  Age: 32 Year
  Sex: Female

DRUGS (4)
  1. SALICYLATE [Concomitant]
     Active Substance: SALICYLIC ACID
     Indication: PRODUCT USED FOR UNKNOWN INDICATION
     Route: 065
  2. SIGNIFOR [Suspect]
     Active Substance: PASIREOTIDE
     Dosage: 0.6 OT, BID
     Route: 065
     Dates: start: 20180602
  3. SIGNIFOR [Suspect]
     Active Substance: PASIREOTIDE
     Indication: PITUITARY-DEPENDENT CUSHING^S SYNDROME
     Dosage: 60 MG, BID
     Route: 065
     Dates: start: 20180114, end: 20180315
  4. CABERGOLINE. [Concomitant]
     Active Substance: CABERGOLINE
     Indication: PRODUCT USED FOR UNKNOWN INDICATION
     Route: 065

REACTIONS (16)
  - Polyuria [Unknown]
  - Swelling [Recovering/Resolving]
  - Blood glucose decreased [Recovered/Resolved]
  - Headache [Recovering/Resolving]
  - Arrhythmia [Unknown]
  - Colitis [Recovering/Resolving]
  - Dizziness [Recovering/Resolving]
  - Hyperglycaemia [Recovered/Resolved]
  - Tremor [Recovering/Resolving]
  - Abdominal pain upper [Recovering/Resolving]
  - Paraesthesia [Not Recovered/Not Resolved]
  - Angina pectoris [Recovering/Resolving]
  - Malaise [Recovered/Resolved]
  - Asthenia [Recovering/Resolving]
  - Diabetes mellitus [Recovering/Resolving]
  - Fatigue [Unknown]

NARRATIVE: CASE EVENT DATE: 201805
